FAERS Safety Report 19895416 (Version 1)
Quarter: 2021Q3

REPORT INFORMATION
  Report Type: Spontaneous
  Country: FR (occurrence: FR)
  Receive Date: 20210929
  Receipt Date: 20210929
  Transmission Date: 20211014
  Serious: Yes (Life-Threatening, Other)
  Sender: FDA-Public Use
  Company Number: FR-AUROBINDO-AUR-APL-2021-040446

PATIENT
  Age: 16 Year
  Sex: Female

DRUGS (4)
  1. LEPTICUR [Suspect]
     Active Substance: TROPATEPINE HYDROCHLORIDE
     Indication: PSYCHOTIC DISORDER
     Dosage: 10 MILLIGRAM, ONCE A DAY
     Route: 048
     Dates: start: 2019
  2. LOXAPAC [Suspect]
     Active Substance: LOXAPINE
     Indication: PSYCHOTIC DISORDER
     Dosage: UNK (25 MG IN THE MORNING AND 50 MG IN THE EVENING)
     Route: 048
     Dates: start: 2019
  3. CLOZAPINE. [Suspect]
     Active Substance: CLOZAPINE
     Indication: PSYCHOTIC DISORDER
     Dosage: UNK
     Route: 048
     Dates: start: 20210715
  4. SERESTA [Suspect]
     Active Substance: OXAZEPAM
     Indication: PSYCHOTIC DISORDER
     Dosage: UNK
     Route: 048
     Dates: start: 2019

REACTIONS (1)
  - Intestinal pseudo-obstruction [Recovered/Resolved with Sequelae]

NARRATIVE: CASE EVENT DATE: 20210824
